FAERS Safety Report 9648096 (Version 4)
Quarter: 2014Q1

REPORT INFORMATION
  Report Type: Spontaneous
  Country: GB (occurrence: GB)
  Receive Date: 20131028
  Receipt Date: 20140325
  Transmission Date: 20141002
  Serious: Yes (Other)
  Sender: FDA-Public Use
  Company Number: PHFR2013GB005538

PATIENT
  Sex: Female

DRUGS (2)
  1. CLOZARIL [Suspect]
     Dosage: UNK
     Route: 048
     Dates: start: 20121011
  2. CLOZARIL [Suspect]
     Dosage: DOSE REDUCED
     Route: 048

REACTIONS (1)
  - Iron deficiency anaemia [Recovered/Resolved]
